FAERS Safety Report 6080375-0 (Version None)
Quarter: 2009Q1

REPORT INFORMATION
  Report Type: 
  Country: None (occurrence: None)
  Receive Date: 20090217
  Receipt Date: 20090212
  Transmission Date: 20090719
  Serious: Yes (Hospitalization)
  Sender: FDA-Public Use
  Company Number: US-MERCK-0901USA01989

PATIENT
  Age: 80 Year
  Sex: Female
  Weight: 60 kg

DRUGS (5)
  1. FOSAMAX [Suspect]
     Indication: OSTEOPOROSIS
     Route: 048
     Dates: start: 19970101, end: 20080101
  2. NEXIUM [Concomitant]
     Indication: GASTROOESOPHAGEAL REFLUX DISEASE
     Route: 048
     Dates: start: 20070101
  3. ZOLOFT [Concomitant]
     Indication: DEPRESSION
     Route: 048
     Dates: start: 20070101
  4. SYNTHROID [Concomitant]
     Indication: HYPOTHYROIDISM
     Route: 048
     Dates: start: 19900101
  5. ATIVAN [Concomitant]
     Indication: ANXIETY
     Route: 048
     Dates: start: 20080101

REACTIONS (8)
  - BACK INJURY [None]
  - BONE PAIN [None]
  - DIZZINESS [None]
  - FALL [None]
  - GASTROOESOPHAGEAL REFLUX DISEASE [None]
  - HELICOBACTER GASTRITIS [None]
  - JAW FRACTURE [None]
  - PAIN IN JAW [None]
